FAERS Safety Report 6610498-6 (Version None)
Quarter: 2010Q1

REPORT INFORMATION
  Report Type: 
  Country: None (occurrence: None)
  Receive Date: 20100302
  Receipt Date: 20100223
  Transmission Date: 20100710
  Serious: Yes (Hospitalization)
  Sender: FDA-Public Use
  Company Number: PHHO2010US03024

PATIENT
  Sex: Female

DRUGS (1)
  1. NEORAL [Suspect]
     Indication: RENAL TRANSPLANT
     Dosage: 250 MG / DAY
     Route: 048
     Dates: start: 20070518

REACTIONS (3)
  - FALL [None]
  - HYPERTENSION [None]
  - UPPER LIMB FRACTURE [None]
